FAERS Safety Report 5984353-9 (Version None)
Quarter: 2008Q4

REPORT INFORMATION
  Report Type: 
  Country: None (occurrence: None)
  Receive Date: 20081208
  Receipt Date: 20081201
  Transmission Date: 20090506
  Serious: Yes (Hospitalization, Other)
  Sender: FDA-Public Use
  Company Number: PHHY2008FR28299

PATIENT
  Sex: Female
  Weight: 63 kg

DRUGS (10)
  1. EXELON [Suspect]
     Indication: DEMENTIA ALZHEIMER'S TYPE
     Dosage: 9.5 MG, QD
     Route: 062
     Dates: start: 20080912
  2. EXELON [Suspect]
     Dosage: 4.6 MG, QD
     Route: 062
     Dates: start: 20081008
  3. MONO-TILDIEM [Suspect]
     Dosage: UNK
     Dates: end: 20081015
  4. COAPROVEL [Concomitant]
     Dosage: 1 DF, QD
     Route: 048
  5. APROVEL [Concomitant]
     Dosage: 150 MG, QD
     Route: 048
     Dates: start: 20081008
  6. ESOMEPRAZOLE MAGNESIUM [Concomitant]
     Dosage: 20 MG, QD
     Route: 048
  7. KARDEGIC [Concomitant]
     Dosage: 75 MG, UNK
  8. EFFEXOR [Concomitant]
     Dosage: 37.5 MG, UNK
  9. DOLIPRANE [Concomitant]
  10. FORLAX [Concomitant]

REACTIONS (5)
  - ATRIOVENTRICULAR BLOCK FIRST DEGREE [None]
  - BRADYCARDIA [None]
  - FALL [None]
  - SUPRAVENTRICULAR EXTRASYSTOLES [None]
  - VENTRICULAR EXTRASYSTOLES [None]
